FAERS Safety Report 8693735 (Version 2)
Quarter: 2012Q4

REPORT INFORMATION
  Report Type: Spontaneous
  Country: DK (occurrence: None)
  Receive Date: 20120713
  Receipt Date: 20121003
  Transmission Date: 20130627
  Serious: Yes (Other)
  Sender: FDA-Public Use
  Company Number: 201207011

PATIENT
  Age: 59 Year
  Sex: Male

DRUGS (7)
  1. TESTIM (TESTOSTERONE) [Suspect]
     Dosage: DOUBLE DOSE (UNKNOWN DOSE)
     Route: 062
     Dates: start: 2004, end: 2008
  2. TESTIM (TESTOSTERONE) [Suspect]
     Route: 062
     Dates: start: 2008, end: 2012
  3. LEVOTHYROXINE (LEVOTHYROXINE) [Concomitant]
  4. LERCANIDIPINE (LERCANIDIPINE) [Concomitant]
  5. RAMIPRIL (RAMIPRIL) [Concomitant]
  6. METOPROLOL (METOPROLOL) [Concomitant]
  7. FLUOROMETHOLONE (FLUOROMETHOLONE) [Concomitant]

REACTIONS (3)
  - Overdose [None]
  - Deep vein thrombosis [None]
  - Pulmonary embolism [None]
